FAERS Safety Report 9415243 (Version 1)
Quarter: 2013Q3

REPORT INFORMATION
  Report Type: Report from Study
  Country: US (occurrence: US)
  Receive Date: 20130723
  Receipt Date: 20130723
  Transmission Date: 20140515
  Serious: Yes (Hospitalization, Other)
  Sender: FDA-Public Use
  Company Number: US-ASTRAZENECA-2013SE52537

PATIENT
  Age: 50 Year
  Sex: Male
  Weight: 107.5 kg

DRUGS (4)
  1. TOPROL-XL [Suspect]
     Indication: HYPERTENSION
     Route: 048
  2. SEROQUEL [Suspect]
     Indication: SCHIZOPHRENIA
     Route: 048
     Dates: start: 2008
  3. SEROQUEL [Suspect]
     Indication: BIPOLAR DISORDER
     Route: 048
     Dates: start: 2008
  4. SEROQUEL [Suspect]
     Indication: ANXIETY
     Route: 048
     Dates: start: 2008

REACTIONS (8)
  - Hypertension [Unknown]
  - Convulsion [Unknown]
  - Hyponatraemic syndrome [Unknown]
  - Mental disorder [Not Recovered/Not Resolved]
  - Hepatic cirrhosis [Unknown]
  - Blood potassium increased [Unknown]
  - Alcoholic liver disease [Unknown]
  - Drug ineffective [Unknown]
